FAERS Safety Report 9778101 (Version 1)
Quarter: 2013Q4

REPORT INFORMATION
  Report Type: Spontaneous
  Country: FR (occurrence: FR)
  Receive Date: 20131223
  Receipt Date: 20131223
  Transmission Date: 20140711
  Serious: Yes (Hospitalization)
  Sender: FDA-Public Use
  Company Number: FR-JNJFOC-20131211229

PATIENT
  Age: 41 Year
  Sex: Female

DRUGS (6)
  1. REMICADE [Suspect]
     Indication: SPONDYLITIS
     Route: 042
     Dates: start: 201105, end: 201301
  2. REMICADE [Suspect]
     Indication: CROHN^S DISEASE
     Route: 042
     Dates: start: 201105, end: 201301
  3. SOLUPRED [Concomitant]
     Route: 065
  4. OXYNORM [Concomitant]
     Route: 065
  5. OXYCONTIN [Concomitant]
     Route: 065
  6. FORLAX [Concomitant]
     Route: 065

REACTIONS (1)
  - Lupus-like syndrome [Recovering/Resolving]
